FAERS Safety Report 9745192 (Version 1)
Quarter: 2013Q4

REPORT INFORMATION
  Report Type: Spontaneous
  Country: US (occurrence: US)
  Receive Date: 20131211
  Receipt Date: 20131211
  Transmission Date: 20140711
  Serious: No
  Sender: FDA-Public Use
  Company Number: US-PFIZER INC-2013353782

PATIENT
  Sex: Male

DRUGS (2)
  1. CELEBREX [Suspect]
     Indication: ARTHRITIS
     Dosage: UNKNOWN DOSE AS NEEDED
  2. CELEBREX [Suspect]
     Indication: SPONDYLITIS

REACTIONS (1)
  - Oropharyngeal pain [Recovered/Resolved]
